FAERS Safety Report 7683466-3 (Version None)
Quarter: 2011Q3

REPORT INFORMATION
  Report Type: 
  Country: None (occurrence: None)
  Receive Date: 20110815
  Receipt Date: 20110809
  Transmission Date: 20111222
  Serious: Yes (Death, Life-Threatening)
  Sender: FDA-Public Use
  Company Number: PHHY2011JP72192

PATIENT
  Age: 80 Year
  Sex: Male

DRUGS (1)
  1. VINORELBINE [Suspect]
     Indication: MESOTHELIOMA
     Dosage: UNK UKN, UNK

REACTIONS (2)
  - DEATH [None]
  - INTERSTITIAL LUNG DISEASE [None]
